FAERS Safety Report 12117413 (Version 1)
Quarter: 2016Q1

REPORT INFORMATION
  Report Type: Report from Study
  Country: RO (occurrence: RO)
  Receive Date: 20160225
  Receipt Date: 20160225
  Transmission Date: 20160526
  Serious: Yes (Death, Hospitalization, Other)
  Sender: FDA-Public Use
  Company Number: RO-ABBVIE-16P-135-1566441-00

PATIENT
  Age: 55 Year
  Sex: Female
  Weight: 65 kg

DRUGS (4)
  1. EXVIERA [Suspect]
     Active Substance: DASABUVIR
     Indication: HEPATIC CIRRHOSIS
     Dosage: 1 TABL BID
     Route: 048
     Dates: start: 20160208, end: 20160221
  2. MODERIBA [Suspect]
     Active Substance: RIBAVIRIN
     Dosage: 2 TABL QD
     Route: 048
     Dates: start: 20160208, end: 20160221
  3. MODERIBA [Suspect]
     Active Substance: RIBAVIRIN
     Indication: HEPATIC CIRRHOSIS
     Dosage: 1 TABL QD
     Route: 048
     Dates: start: 20160208, end: 20160221
  4. VIEKIRAX [Suspect]
     Active Substance: OMBITASVIR\PARITAPREVIR\RITONAVIR
     Indication: HEPATIC CIRRHOSIS
     Dosage: 2 TABL QD
     Route: 048
     Dates: start: 20160208, end: 20160221

REACTIONS (9)
  - Malaise [Not Recovered/Not Resolved]
  - Back pain [Not Recovered/Not Resolved]
  - Pyrexia [Unknown]
  - Varicose ulceration [Unknown]
  - Thrombophlebitis [Not Recovered/Not Resolved]
  - Urinary tract infection [Not Recovered/Not Resolved]
  - Cardio-respiratory arrest [Not Recovered/Not Resolved]
  - Nausea [Unknown]
  - Arrhythmia [Fatal]

NARRATIVE: CASE EVENT DATE: 20160213
